FAERS Safety Report 9325718 (Version 1)
Quarter: 2013Q2

REPORT INFORMATION
  Report Type: Spontaneous
  Country: US (occurrence: None)
  Receive Date: 20130603
  Receipt Date: 20130603
  Transmission Date: 20140414
  Serious: Yes (Death)
  Sender: FDA-Public Use
  Company Number: None

PATIENT
  Sex: Male

DRUGS (2)
  1. TRUVADA [Suspect]
     Indication: HIV INFECTION
     Dosage: 200/300MG QD PO
     Route: 048
     Dates: start: 20111104
  2. VIRAMUNE XR 400 MG [Suspect]
     Indication: HIV INFECTION
     Dosage: 400MG QD PO
     Route: 048
     Dates: start: 20111104

REACTIONS (1)
  - Completed suicide [None]
